FAERS Safety Report 10177212 (Version 2)
Quarter: 2014Q3

REPORT INFORMATION
  Report Type: Spontaneous
  Country: US (occurrence: US)
  Receive Date: 20140516
  Receipt Date: 20140723
  Transmission Date: 20150326
  Serious: Yes (Other)
  Sender: FDA-Public Use
  Company Number: US-ALLERGAN-1409837US

PATIENT
  Age: 17 Year
  Sex: Male

DRUGS (1)
  1. FABIOR [Suspect]
     Active Substance: TAZAROTENE
     Indication: ACNE
     Dosage: 1 DF, QHS
     Route: 061

REACTIONS (2)
  - Blister [Recovered/Resolved]
  - Dermatitis contact [Recovered/Resolved]
